FAERS Safety Report 9242678 (Version 1)
Quarter: 2013Q2

REPORT INFORMATION
  Report Type: Spontaneous
  Country: US (occurrence: US)
  Receive Date: 20130419
  Receipt Date: 20130419
  Transmission Date: 20140414
  Serious: Yes (Other)
  Sender: FDA-Public Use
  Company Number: US-JNJFOC-20130407865

PATIENT
  Sex: Male

DRUGS (2)
  1. PREZISTA [Suspect]
     Indication: HIV INFECTION
     Route: 065
  2. PREZISTA [Suspect]
     Indication: HIV INFECTION
     Route: 065

REACTIONS (2)
  - Renal failure [Unknown]
  - Pruritus [Unknown]
